FAERS Safety Report 22251224 (Version 1)
Quarter: 2023Q2

REPORT INFORMATION
  Report Type: Spontaneous
  Country: CN (occurrence: CN)
  Receive Date: 20230425
  Receipt Date: 20230425
  Transmission Date: 20230722
  Serious: Yes (Hospitalization, Disabling)
  Sender: FDA-Public Use
  Company Number: CN-PFIZER INC-PV202300073754

PATIENT
  Age: 83 Year
  Sex: Male
  Weight: 50 kg

DRUGS (2)
  1. TIGECYCLINE [Suspect]
     Active Substance: TIGECYCLINE
     Indication: Pneumonia
     Dosage: 100 MG, 2X/DAY
     Route: 041
     Dates: start: 20230304, end: 20230324
  2. SODIUM CHLORIDE [Concomitant]
     Active Substance: SODIUM CHLORIDE
     Indication: Pneumonia
     Dosage: 100 ML, 2X/DAY
     Route: 041
     Dates: start: 20230304, end: 20230324

REACTIONS (5)
  - Hepatic enzyme increased [Recovered/Resolved with Sequelae]
  - Blood alkaline phosphatase increased [Recovered/Resolved with Sequelae]
  - Alanine aminotransferase increased [Recovered/Resolved with Sequelae]
  - Aspartate aminotransferase increased [Recovered/Resolved with Sequelae]
  - Gamma-glutamyltransferase increased [Recovered/Resolved with Sequelae]

NARRATIVE: CASE EVENT DATE: 20230324
